FAERS Safety Report 25398412 (Version 1)
Quarter: 2025Q2

REPORT INFORMATION
  Report Type: Spontaneous
  Country: US (occurrence: US)
  Receive Date: 20250604
  Receipt Date: 20250604
  Transmission Date: 20250717
  Serious: No
  Sender: SANOFI AVENTIS
  Company Number: US-SA-2025SA158414

PATIENT
  Age: 36 Year
  Sex: Female

DRUGS (2)
  1. DUPIXENT [Suspect]
     Active Substance: DUPILUMAB
     Indication: Dermatitis atopic
     Route: 058
     Dates: start: 20241211
  2. EBGLYSS [LEBRIKIZUMAB LBKZ] [Concomitant]

REACTIONS (2)
  - Allergy to chemicals [Unknown]
  - Herpes zoster [Unknown]

NARRATIVE: CASE EVENT DATE: 20250602
